FAERS Safety Report 9412477 (Version 1)
Quarter: 2013Q3

REPORT INFORMATION
  Report Type: Spontaneous
  Country: JP (occurrence: None)
  Receive Date: 20130703
  Receipt Date: 20130703
  Transmission Date: 20140515
  Serious: Yes (Hospitalization)
  Sender: FDA-Public Use
  Company Number: 2013S1001331

PATIENT
  Age: 67 Year
  Sex: Female

DRUGS (1)
  1. LIVALO (PITAVASTATIN) TABLETS 2 MG [Suspect]
     Indication: HYPERCHOLESTEROLAEMIA
     Route: 048
     Dates: start: 20130415, end: 20130502

REACTIONS (1)
  - Myalgia [None]
